FAERS Safety Report 8333558-0 (Version None)
Quarter: 2012Q2

REPORT INFORMATION
  Report Type: 
  Country: None (occurrence: None)
  Receive Date: 20120503
  Receipt Date: 20101116
  Transmission Date: 20120825
  Serious: No
  Sender: FDA-Public Use
  Company Number: US-TEVA-2010005961

PATIENT
  Sex: Female
  Weight: 68.1 kg

DRUGS (6)
  1. VYVANSE [Concomitant]
     Dates: start: 20100801
  2. NUVIGIL [Suspect]
     Indication: NARCOLEPSY
     Dosage: 150 MILLIGRAM;
     Route: 048
     Dates: start: 20100801, end: 20100801
  3. RITALIN [Concomitant]
     Dates: start: 20060101
  4. SPRINTEC [Concomitant]
     Dates: start: 20030101
  5. FLUOXETINE [Concomitant]
     Dates: start: 20030101
  6. NUVIGIL [Suspect]
     Dosage: 250 MILLIGRAM;
     Route: 048
     Dates: start: 20100801

REACTIONS (5)
  - AMNESIA [None]
  - DRUG INEFFECTIVE [None]
  - SOMNOLENCE [None]
  - DIZZINESS [None]
  - NAUSEA [None]
